FAERS Safety Report 5175373-5 (Version None)
Quarter: 2006Q4

REPORT INFORMATION
  Report Type: 
  Country: None (occurrence: None)
  Receive Date: 20061211
  Receipt Date: 20061211
  Transmission Date: 20070319
  Serious: Yes (Other)
  Sender: FDA-Public Use
  Company Number: None

PATIENT
  Age: 36 Year
  Sex: Male
  Weight: 70 kg

DRUGS (1)
  1. LARIAM [Suspect]
     Indication: MALARIA PROPHYLAXIS
     Dosage: THREE PILLS OF 250 MG ONE A WEEK
     Dates: start: 20060910, end: 20060924

REACTIONS (4)
  - FATIGUE [None]
  - MOOD SWINGS [None]
  - RESTLESSNESS [None]
  - TINNITUS [None]
